FAERS Safety Report 9572908 (Version 3)
Quarter: 2013Q4

REPORT INFORMATION
  Report Type: Spontaneous
  Country: CZ (occurrence: CZ)
  Receive Date: 20131001
  Receipt Date: 20131025
  Transmission Date: 20140711
  Serious: No
  Sender: FDA-Public Use
  Company Number: CZ-AMGEN-CZESP2013068147

PATIENT
  Age: 59 Year
  Sex: Male

DRUGS (2)
  1. VECTIBIX [Suspect]
     Indication: COLORECTAL ADENOCARCINOMA
     Dosage: 600 MG, Q2WK
     Route: 065
  2. PHYTOMENADIONE [Concomitant]
     Indication: FOLLICULITIS
     Dosage: 0.1 %, UNK

REACTIONS (1)
  - Folliculitis [Unknown]
